FAERS Safety Report 8479177-7 (Version None)
Quarter: 2012Q2

REPORT INFORMATION
  Report Type: 
  Country: None (occurrence: None)
  Receive Date: 20120629
  Receipt Date: 20120621
  Transmission Date: 20120825
  Serious: Yes (Other)
  Sender: FDA-Public Use
  Company Number: NL-JNJFOC-20120610623

PATIENT
  Age: 28 Year
  Sex: Male

DRUGS (6)
  1. ASACOL [Concomitant]
     Route: 065
  2. PAROXETINE HCL [Concomitant]
     Route: 065
  3. SINEMET [Suspect]
     Indication: PRODUCT USED FOR UNKNOWN INDICATION
     Route: 065
  4. REMICADE [Suspect]
     Route: 042
     Dates: start: 20111201, end: 20120301
  5. REMICADE [Suspect]
     Indication: COLITIS
     Route: 042
     Dates: start: 20091001, end: 20110301
  6. RISPERIDONE [Concomitant]
     Route: 065

REACTIONS (5)
  - DYSPNOEA [None]
  - VISUAL IMPAIRMENT [None]
  - MENTAL DISORDER [None]
  - WEIGHT DECREASED [None]
  - ADVERSE EVENT [None]
